FAERS Safety Report 4656365-9 (Version None)
Quarter: 2005Q2

REPORT INFORMATION
  Report Type: 
  Country: None (occurrence: None)
  Receive Date: 20050505
  Receipt Date: 20050420
  Transmission Date: 20051028
  Serious: Yes (Death, Other)
  Sender: FDA-Public Use
  Company Number: EWC050443696

PATIENT
  Age: 70 Year
  Sex: Female
  Weight: 50 kg

DRUGS (6)
  1. ZYPREXA [Suspect]
     Indication: AGITATION
     Dosage: 10 MG/1
     Dates: start: 20050419, end: 20050419
  2. ZYPREXA [Suspect]
     Indication: DEMENTIA
     Dosage: 10 MG/1
     Dates: start: 20050419, end: 20050419
  3. CLOPIXOL ACUPHASE (ZUCLOPENTHIXOL ACETATE) [Concomitant]
  4. CLOPIXOL DEPOT (ZUCLOPENTHIXOL DECANOATE) [Concomitant]
  5. MIRTAZAPINE [Concomitant]
  6. DIAZEPAM [Concomitant]

REACTIONS (3)
  - CARDIO-RESPIRATORY ARREST [None]
  - DYSPHAGIA [None]
  - SYNCOPE [None]
